FAERS Safety Report 4743517-2 (Version None)
Quarter: 2005Q3

REPORT INFORMATION
  Report Type: 
  Country: None (occurrence: None)
  Receive Date: 20050809
  Receipt Date: 20050801
  Transmission Date: 20060218
  Serious: Yes (Hospitalization)
  Sender: FDA-Public Use
  Company Number: 200510466BNE

PATIENT
  Age: 59 Year
  Sex: Female

DRUGS (3)
  1. ASPIRIN [Suspect]
     Indication: CEREBROVASCULAR ACCIDENT
     Dosage: 300 MG, TOTAL DAILY, ORAL
     Route: 048
     Dates: start: 20000101, end: 20050712
  2. DICLOFENAC [Suspect]
     Indication: ARTHROSCOPY
     Dosage: 50 MG, TID, ORAL
     Route: 048
     Dates: start: 20050709, end: 20050710
  3. TEGRETOL [Concomitant]

REACTIONS (5)
  - ABDOMINAL PAIN [None]
  - ARTHROSCOPY [None]
  - DIARRHOEA [None]
  - RASH [None]
  - RECTAL HAEMORRHAGE [None]
